FAERS Safety Report 16630314 (Version 2)
Quarter: 2019Q3

REPORT INFORMATION
  Report Type: Spontaneous
  Country: US (occurrence: US)
  Receive Date: 20190725
  Receipt Date: 20190807
  Transmission Date: 20191004
  Serious: Yes (Hospitalization)
  Sender: FDA-Public Use
  Company Number: US-EMMAUS MEDICAL, INC.-EMM201907-000221

PATIENT
  Age: 44 Year
  Sex: Female

DRUGS (1)
  1. ENDARI [Suspect]
     Active Substance: GLUTAMINE
     Indication: SICKLE CELL DISEASE
     Route: 048
     Dates: start: 20180522

REACTIONS (2)
  - Cardiac disorder [Recovering/Resolving]
  - Pulmonary congestion [Unknown]

NARRATIVE: CASE EVENT DATE: 20190618
